FAERS Safety Report 14226191 (Version 1)
Quarter: 2017Q4

REPORT INFORMATION
  Report Type: Spontaneous
  Country: CA (occurrence: CA)
  Receive Date: 20171127
  Receipt Date: 20171127
  Transmission Date: 20180321
  Serious: Yes (Hospitalization)
  Sender: FDA-Public Use
  Company Number: CA-PFIZER INC-2017497115

PATIENT
  Age: 52 Year
  Sex: Male

DRUGS (1)
  1. METRONIDAZOLE. [Suspect]
     Active Substance: METRONIDAZOLE
     Indication: BLASTOCYSTIS INFECTION
     Dosage: UNK
     Dates: start: 2017, end: 2017

REACTIONS (2)
  - Diarrhoea haemorrhagic [Unknown]
  - Drug ineffective [Unknown]
